FAERS Safety Report 12294188 (Version 1)
Quarter: 2016Q2

REPORT INFORMATION
  Report Type: Spontaneous
  Country: None (occurrence: None)
  Receive Date: 20160421
  Receipt Date: 20160421
  Transmission Date: 20160815
  Serious: Yes (Other)
  Sender: FDA-Public Use
  Company Number: US-ALSI-201600082

PATIENT
  Age: 51 Year
  Sex: Male

DRUGS (2)
  1. AIR USP OXYGEN [Suspect]
     Active Substance: OXYGEN
     Route: 055
  2. OXYGEN USP OXYGEN [Suspect]
     Active Substance: OXYGEN
     Indication: HYPERBARIC OXYGEN THERAPY
     Route: 055

REACTIONS (1)
  - Seizure [None]

NARRATIVE: CASE EVENT DATE: 20160408
